FAERS Safety Report 16878306 (Version 1)
Quarter: 2019Q4

REPORT INFORMATION
  Report Type: Report from Study
  Country: GB (occurrence: GB)
  Receive Date: 20191002
  Receipt Date: 20191002
  Transmission Date: 20200122
  Serious: Yes (Hospitalization)
  Sender: FDA-Public Use
  Company Number: GB-JNJFOC-20190835453

PATIENT
  Age: 32 Year
  Sex: Female

DRUGS (2)
  1. STELARA [Suspect]
     Active Substance: USTEKINUMAB
     Indication: CROHN^S DISEASE
     Route: 058
     Dates: start: 20190703
  2. VENALAX                            /01233802/ [Concomitant]

REACTIONS (1)
  - Intestinal resection [Unknown]

NARRATIVE: CASE EVENT DATE: 20190821
